FAERS Safety Report 15006453 (Version 1)
Quarter: 2018Q2

REPORT INFORMATION
  Report Type: Spontaneous
  Country: US (occurrence: US)
  Receive Date: 20180613
  Receipt Date: 20180613
  Transmission Date: 20180711
  Serious: Yes (Hospitalization)
  Sender: FDA-Public Use
  Company Number: US-JNJFOC-20180613056

PATIENT
  Sex: Male

DRUGS (12)
  1. LEVOTHYROXINE. [Concomitant]
     Active Substance: LEVOTHYROXINE
  2. LISINOPRIL. [Concomitant]
     Active Substance: LISINOPRIL
  3. JANUVIA [Concomitant]
     Active Substance: SITAGLIPTIN PHOSPHATE
  4. LOSARTAN. [Concomitant]
     Active Substance: LOSARTAN
  5. SIMVASTATIN. [Concomitant]
     Active Substance: SIMVASTATIN
  6. DOXAZOSIN [Concomitant]
     Active Substance: DOXAZOSIN\DOXAZOSIN MESYLATE
  7. GLIPIZIDE. [Concomitant]
     Active Substance: GLIPIZIDE
  8. FINASTERIDE. [Concomitant]
     Active Substance: FINASTERIDE
  9. LATANOPROST. [Concomitant]
     Active Substance: LATANOPROST
  10. IMBRUVICA [Suspect]
     Active Substance: IBRUTINIB
     Indication: B-CELL LYMPHOMA
     Route: 048
  11. DILTIAZEM. [Concomitant]
     Active Substance: DILTIAZEM
  12. METFORMIN [Concomitant]
     Active Substance: METFORMIN HYDROCHLORIDE

REACTIONS (2)
  - Drug-induced liver injury [Unknown]
  - Surgery [Unknown]
